FAERS Safety Report 17680002 (Version 2)
Quarter: 2020Q2

REPORT INFORMATION
  Report Type: Report from Study
  Country: US (occurrence: US)
  Receive Date: 20200417
  Receipt Date: 20200430
  Transmission Date: 20200714
  Serious: Yes (Other)
  Sender: FDA-Public Use
  Company Number: US-ASTRAZENECA-2020SE51754

PATIENT
  Sex: Female
  Weight: 74.8 kg

DRUGS (14)
  1. VITAMIN C [Concomitant]
     Active Substance: ASCORBIC ACID
  2. HAWTHORN BERRY [Concomitant]
  3. MULTIVITAMIN [Concomitant]
     Active Substance: VITAMINS
  4. XARELTO [Concomitant]
     Active Substance: RIVAROXABAN
  5. VITAMIN D3 [Concomitant]
     Active Substance: CHOLECALCIFEROL
     Dosage: 5000 UNITS
  6. OLIVE LEAF EXTRACT [Concomitant]
  7. BIOTIN [Concomitant]
     Active Substance: BIOTIN
  8. TAGRISSO [Suspect]
     Active Substance: OSIMERTINIB
     Route: 048
  9. VITAMIN B12 [Concomitant]
     Active Substance: CYANOCOBALAMIN
  10. TAGRISSO [Suspect]
     Active Substance: OSIMERTINIB
     Route: 048
     Dates: start: 201801, end: 20190607
  11. FLAXSEED [Concomitant]
     Active Substance: FLAX SEED
  12. HYDROCODONE BITRITATE [Concomitant]
  13. PROBIOTIC [Concomitant]
     Active Substance: PROBIOTICS NOS
  14. TURMERIC [Concomitant]
     Active Substance: HERBALS\TURMERIC

REACTIONS (4)
  - Tooth disorder [Unknown]
  - Stomatitis [Unknown]
  - Intentional product misuse [Unknown]
  - Toxicity to various agents [Unknown]
